FAERS Safety Report 5055812-0 (Version None)
Quarter: 2006Q3

REPORT INFORMATION
  Report Type: 
  Country: None (occurrence: None)
  Receive Date: 20060718
  Receipt Date: 20060718
  Transmission Date: 20061208
  Serious: No
  Sender: FDA-Public Use
  Company Number: None

PATIENT
  Age: 16 Year
  Sex: Male
  Weight: 58.0604 kg

DRUGS (2)
  1. ACCUTANE [Suspect]
     Indication: ACNE
     Dosage: 10 MG TWICE A DAY PO
     Route: 048
     Dates: start: 20041110, end: 20050310
  2. CLARAVIS [Suspect]
     Dates: start: 20050915, end: 20051115

REACTIONS (1)
  - EPIPHYSES PREMATURE FUSION [None]
